FAERS Safety Report 12386407 (Version 4)
Quarter: 2016Q3

REPORT INFORMATION
  Report Type: Spontaneous
  Country: US (occurrence: US)
  Receive Date: 20160519
  Receipt Date: 20160831
  Transmission Date: 20161109
  Serious: Yes (Hospitalization, Other)
  Sender: FDA-Public Use
  Company Number: US-BAYER-2016-097030

PATIENT
  Age: 28 Year
  Sex: Female
  Weight: 79.37 kg

DRUGS (2)
  1. PRENATAL VITAMINS [Concomitant]
     Active Substance: VITAMINS
  2. MIRENA [Suspect]
     Active Substance: LEVONORGESTREL
     Indication: CONTRACEPTION
     Dosage: 20 MCG/24HR, CONT
     Route: 003
     Dates: start: 20091005, end: 20110615

REACTIONS (4)
  - Drug ineffective [None]
  - Uterine perforation [None]
  - Device issue [None]
  - Pregnancy with contraceptive device [None]

NARRATIVE: CASE EVENT DATE: 200910
